FAERS Safety Report 7137828-3 (Version None)
Quarter: 2010Q4

REPORT INFORMATION
  Report Type: 
  Country: None (occurrence: None)
  Receive Date: 20101206
  Receipt Date: 20101123
  Transmission Date: 20110411
  Serious: Yes (Death, Hospitalization)
  Sender: FDA-Public Use
  Company Number: GB-NOVOPROD-317934

PATIENT
  Age: 48 Year
  Sex: Male

DRUGS (1)
  1. INSULATARD INNOLET [Suspect]
     Indication: OFF LABEL USE

REACTIONS (5)
  - BRAIN INJURY [None]
  - HYPOGLYCAEMIC COMA [None]
  - INTENTIONAL DRUG MISUSE [None]
  - MULTI-ORGAN FAILURE [None]
  - VICTIM OF HOMICIDE [None]
